FAERS Safety Report 21545551 (Version 1)
Quarter: 2022Q4

REPORT INFORMATION
  Report Type: Spontaneous
  Country: CA (occurrence: CA)
  Receive Date: 20221103
  Receipt Date: 20221103
  Transmission Date: 20230113
  Serious: Yes (Other)
  Sender: FDA-Public Use
  Company Number: CA-002147023-NVSC2022CA241956

PATIENT
  Age: 4 Month
  Sex: Female

DRUGS (1)
  1. TRAMETINIB [Suspect]
     Active Substance: TRAMETINIB
     Indication: Inflammatory myofibroblastic tumour
     Dosage: 0.032 MG/KG, QD, AT 4 MONTHS OF AGE
     Route: 065

REACTIONS (5)
  - Blood creatine phosphokinase increased [Unknown]
  - Paronychia [Unknown]
  - Stomatitis [Unknown]
  - Product use in unapproved indication [Unknown]
  - Product use issue [Unknown]
